FAERS Safety Report 7521968-0 (Version None)
Quarter: 2011Q2

REPORT INFORMATION
  Report Type: 
  Country: None (occurrence: None)
  Receive Date: 20110603
  Receipt Date: 20110518
  Transmission Date: 20111010
  Serious: No
  Sender: FDA-Public Use
  Company Number: US-B.I. PHARMACEUTICALS,INC./RIDGEFIELD-2011-BP-13482BP

PATIENT
  Age: 68 Year
  Sex: Female

DRUGS (19)
  1. REMERON [Concomitant]
     Route: 048
  2. POTASSIUM CHLORIDE [Concomitant]
     Route: 048
  3. LUTEIN [Concomitant]
     Indication: ROUTINE HEALTH MAINTENANCE
     Route: 048
  4. ANTIBIOTIC [Concomitant]
     Indication: PSEUDOMONAS INFECTION
     Route: 042
  5. LEVOTHYROXINE SODIUM [Concomitant]
     Route: 048
  6. PRADAXA [Suspect]
     Indication: ATRIAL FIBRILLATION
     Dosage: 300 MG
     Route: 048
     Dates: start: 20110401
  7. LASIX [Concomitant]
     Route: 048
  8. OMEPRAZOLE [Concomitant]
     Route: 048
  9. LACTOBACILLUS [Concomitant]
     Route: 048
  10. CALCIUM SUPPLEMENT [Concomitant]
     Indication: ROUTINE HEALTH MAINTENANCE
     Route: 048
  11. OXYCODONE HCL [Concomitant]
     Indication: BACK DISORDER
     Route: 048
  12. PREDNISONE [Concomitant]
     Route: 048
  13. VITAMIN D [Concomitant]
     Indication: ROUTINE HEALTH MAINTENANCE
     Route: 048
  14. FERROUS SULFATE TAB [Concomitant]
     Route: 048
  15. SOTALOL HCL [Concomitant]
     Route: 048
  16. METOPROLOL TARTRATE [Concomitant]
     Route: 048
  17. VENTOLIN [Concomitant]
     Route: 055
  18. ALBUTEROL SULFATE AUTOHALER [Concomitant]
     Route: 055
  19. HYDROCODONE BITARTRATE [Concomitant]
     Indication: BACK DISORDER
     Route: 048

REACTIONS (1)
  - CONFUSIONAL STATE [None]
